FAERS Safety Report 9211024 (Version 1)
Quarter: 2013Q2

REPORT INFORMATION
  Report Type: Other
  Country: NL (occurrence: NL)
  Receive Date: 20130404
  Receipt Date: 20130404
  Transmission Date: 20140414
  Serious: Yes (Other)
  Sender: FDA-Public Use
  Company Number: NL-NICOBRDEVP-2013-05716

PATIENT
  Age: 37 Year
  Sex: Female

DRUGS (2)
  1. METRONIDAZOLE (UNKNOWN) [Suspect]
     Indication: PRODUCT USED FOR UNKNOWN INDICATION
     Dosage: 500 MG, BID
     Route: 048
     Dates: start: 20130122
  2. NUVARING [Interacting]
     Indication: CONTRACEPTION
     Dosage: 1 RING FOR 3 WEEKS, REMOVE FOR 1 WEEK
     Route: 067
     Dates: start: 20080714

REACTIONS (2)
  - Pregnancy with contraceptive device [Recovered/Resolved with Sequelae]
  - Drug interaction [Recovered/Resolved with Sequelae]
